FAERS Safety Report 24073093 (Version 1)
Quarter: 2024Q3

REPORT INFORMATION
  Report Type: Spontaneous
  Country: BR (occurrence: BR)
  Receive Date: 20240710
  Receipt Date: 20240710
  Transmission Date: 20241017
  Serious: Yes (Disabling)
  Sender: PFIZER
  Company Number: BR-PFIZER INC-PV202400089206

PATIENT
  Age: 47 Year
  Sex: Male

DRUGS (1)
  1. TALIGLUCERASE ALFA [Suspect]
     Active Substance: TALIGLUCERASE ALFA
     Indication: Gaucher^s disease
     Dosage: 36 IU/KG, EVERY 15 DAYS
     Route: 042

REACTIONS (5)
  - Lower limb fracture [Unknown]
  - Bone pain [Unknown]
  - Pain in extremity [Unknown]
  - Feeling of despair [Unknown]
  - Self esteem decreased [Unknown]
